FAERS Safety Report 5811880-7 (Version None)
Quarter: 2008Q3

REPORT INFORMATION
  Report Type: 
  Country: None (occurrence: None)
  Receive Date: 20080716
  Receipt Date: 20080703
  Transmission Date: 20090109
  Serious: Yes (Other)
  Sender: FDA-Public Use
  Company Number: GR-ELI_LILLY_AND_COMPANY-GR200807000929

PATIENT
  Age: 42 Year
  Sex: Female
  Weight: 74 kg

DRUGS (2)
  1. CYMBALTA [Suspect]
     Indication: DEPRESSION
     Dosage: 60 MG, DAILY (1/D)
     Route: 048
     Dates: start: 20080520, end: 20080528
  2. FLIXOTIDE [Concomitant]
     Indication: ASTHMA
     Dosage: UNK UNK, DAILY (1/D)
     Route: 055

REACTIONS (3)
  - DRY MOUTH [None]
  - DYSPHONIA [None]
  - OROPHARYNGEAL PAIN [None]
